FAERS Safety Report 20218531 (Version 1)
Quarter: 2021Q4

REPORT INFORMATION
  Report Type: Spontaneous
  Country: US (occurrence: US)
  Receive Date: 20211222
  Receipt Date: 20211222
  Transmission Date: 20220303
  Serious: No
  Sender: FDA-Public Use
  Company Number: US-BioHaven Pharmaceuticals-2021BHV000659

PATIENT
  Sex: Female

DRUGS (1)
  1. NURTEC ODT [Suspect]
     Active Substance: RIMEGEPANT SULFATE
     Indication: Migraine
     Dosage: ABOUT A WEEK BEFORE (UNSPECIFIED DATE) SHE TOOK THE NURTEC ON SUNDAY.
     Route: 065

REACTIONS (9)
  - Dizziness [Unknown]
  - Hot flush [Unknown]
  - Temperature intolerance [Unknown]
  - Abdominal discomfort [Unknown]
  - Somnolence [Unknown]
  - Myoclonus [Unknown]
  - Dyspepsia [Unknown]
  - Nervousness [Unknown]
  - Nausea [Unknown]
